FAERS Safety Report 7301188-5 (Version None)
Quarter: 2011Q1

REPORT INFORMATION
  Report Type: 
  Country: None (occurrence: None)
  Receive Date: 20110112
  Receipt Date: 20090625
  Transmission Date: 20110831
  Serious: Yes (Other)
  Sender: FDA-Public Use
  Company Number: THYM-1001067

PATIENT
  Age: 24 Year
  Sex: Female

DRUGS (3)
  1. THYMOGLOBULIN [Suspect]
     Indication: PROPHYLAXIS AGAINST TRANSPLANT REJECTION
     Dosage: 130 MG, ONCE, INTRAVENOUS, 100 MG, QD, INTRAVENOUS
     Route: 042
     Dates: start: 20090603, end: 20090603
  2. THYMOGLOBULIN [Suspect]
     Indication: PROPHYLAXIS AGAINST TRANSPLANT REJECTION
     Dosage: 130 MG, ONCE, INTRAVENOUS, 100 MG, QD, INTRAVENOUS
     Route: 042
     Dates: start: 20090605, end: 20090607
  3. IMMUNE GLOBULIN (HUMAN) [Concomitant]

REACTIONS (1)
  - INFUSION RELATED REACTION [None]
